FAERS Safety Report 8654484 (Version 2)
Quarter: 2012Q4

REPORT INFORMATION
  Report Type: 
  Country: FR (occurrence: FR)
  Receive Date: 20120709
  Receipt Date: 20121115
  Transmission Date: 20130627
  Serious: Yes (Hospitalization, Other)
  Sender: FDA-Public Use
  Company Number: FR-UCBSA-060890

PATIENT
  Sex: Male

DRUGS (6)
  1. REYATAZ [Concomitant]
     Indication: HIV INFECTION
     Route: 048
  2. TRUVADA [Concomitant]
     Indication: HIV INFECTION
     Dosage: 200 MG, ONCE DAILY
     Route: 048
  3. VIMPAT [Suspect]
     Indication: EPILEPSY
     Dosage: DAILY DOSE : 350 MG (200 MG+150 MG)
     Route: 048
  4. KEPPRA [Concomitant]
     Indication: EPILEPSY
     Route: 048
  5. TEGRETOL [Concomitant]
     Indication: EPILEPSY
     Route: 048
  6. ZONEGRAN [Concomitant]
     Indication: EPILEPSY
     Route: 048

REACTIONS (2)
  - Atrioventricular block second degree [Recovered/Resolved]
  - Bradycardia [Unknown]
